FAERS Safety Report 7953080-0 (Version None)
Quarter: 2011Q4

REPORT INFORMATION
  Report Type: 
  Country: None (occurrence: None)
  Receive Date: 20111201
  Receipt Date: 20111122
  Transmission Date: 20120403
  Serious: Yes (Disabling)
  Sender: FDA-Public Use
  Company Number: BR-ASTRAZENECA-2011SE62143

PATIENT
  Age: 38 Year
  Sex: Male

DRUGS (2)
  1. SYMBICORT [Suspect]
     Dosage: 12/400MCG UNKNOWN
     Route: 055
  2. SYMBICORT [Suspect]
     Dosage: 320/9MCG UNKNOWN
     Route: 055

REACTIONS (1)
  - CONDITION AGGRAVATED [None]
